FAERS Safety Report 16959398 (Version 2)
Quarter: 2019Q4

REPORT INFORMATION
  Report Type: Spontaneous
  Country: SG (occurrence: SG)
  Receive Date: 20191025
  Receipt Date: 20191112
  Transmission Date: 20200122
  Serious: Yes (Death, Hospitalization, Other)
  Sender: FDA-Public Use
  Company Number: SG-009507513-1910SGP013593

PATIENT
  Age: 71 Year
  Sex: Female

DRUGS (1)
  1. KEYTRUDA [Suspect]
     Active Substance: PEMBROLIZUMAB
     Dosage: 1 CYCLE
     Dates: start: 20191001

REACTIONS (4)
  - Asthenia [Unknown]
  - Death [Fatal]
  - Adverse event [Unknown]
  - Dyspnoea [Unknown]

NARRATIVE: CASE EVENT DATE: 201910
